FAERS Safety Report 23269797 (Version 1)
Quarter: 2023Q4

REPORT INFORMATION
  Report Type: Spontaneous
  Country: US (occurrence: US)
  Receive Date: 20231207
  Receipt Date: 20231207
  Transmission Date: 20240110
  Serious: No
  Sender: FDA-Public Use
  Company Number: US-HIKMA PHARMACEUTICALS USA INC.-US-H14001-22-03031

PATIENT
  Age: 5 Year
  Sex: Female

DRUGS (1)
  1. AMOXICILLIN\CLAVULANATE POTASSIUM [Suspect]
     Active Substance: AMOXICILLIN\CLAVULANATE POTASSIUM
     Indication: Product used for unknown indication
     Dosage: 7.5 MILLILITER
     Route: 065

REACTIONS (5)
  - Sneezing [Unknown]
  - Pruritus [Unknown]
  - Cough [Unknown]
  - Drug hypersensitivity [Unknown]
  - Eye swelling [Unknown]
